FAERS Safety Report 6774515-5 (Version None)
Quarter: 2010Q2

REPORT INFORMATION
  Report Type: 
  Country: None (occurrence: None)
  Receive Date: 20100617
  Receipt Date: 20100609
  Transmission Date: 20101027
  Serious: Yes (Life-Threatening, Hospitalization, Other)
  Sender: FDA-Public Use
  Company Number: PHHY2010US26825

PATIENT
  Sex: Male

DRUGS (10)
  1. GLEEVEC [Suspect]
     Indication: ACUTE MYELOID LEUKAEMIA
     Dosage: 400 MG, DAILY
     Route: 048
     Dates: start: 20060609, end: 20100209
  2. ALLOPURINOL [Concomitant]
     Dosage: 100 MG, UNK
  3. DIGOXIN [Concomitant]
     Dosage: 12.5 MG, UNK
  4. FUROSEMIDE [Concomitant]
     Dosage: 40 MG, UNK
  5. PROTONIX [Concomitant]
     Dosage: 40 MG, UNK
  6. POTASSIUM CHLORIDE [Concomitant]
  7. TOPROL-XL [Concomitant]
     Dosage: 50 MG, UNK
  8. LIPITROL [Concomitant]
     Dosage: 40 MG, UNK
  9. LOWGUARD [Concomitant]
     Dosage: 12.5 MG, UNK
  10. PLAVIX [Concomitant]
     Dosage: 75 MG, UNK

REACTIONS (12)
  - AORTIC STENOSIS [None]
  - ATRIAL FIBRILLATION [None]
  - CARDIAC FAILURE CONGESTIVE [None]
  - CEREBROVASCULAR ACCIDENT [None]
  - CORONARY ARTERY DISEASE [None]
  - EJECTION FRACTION DECREASED [None]
  - MITRAL VALVE INCOMPETENCE [None]
  - MUSCLE SPASMS [None]
  - MYOCARDIAL INFARCTION [None]
  - RENAL FAILURE [None]
  - RETCHING [None]
  - SURGERY [None]
